FAERS Safety Report 6331058-0 (Version None)
Quarter: 2009Q3

REPORT INFORMATION
  Report Type: 
  Country: None (occurrence: None)
  Receive Date: 20090827
  Receipt Date: 20090820
  Transmission Date: 20100115
  Serious: Yes (Hospitalization)
  Sender: FDA-Public Use
  Company Number: B0584462A

PATIENT
  Sex: Female

DRUGS (3)
  1. TYKERB [Suspect]
     Indication: METASTASES TO LIVER
     Dosage: 1250MG PER DAY
     Route: 048
     Dates: start: 20090701
  2. XELODA [Concomitant]
     Indication: METASTASES TO LIVER
     Dosage: 3600MG PER DAY
     Route: 048
     Dates: start: 20090701
  3. PYDOXAL [Concomitant]
     Indication: PROPHYLAXIS
     Dosage: 60MG PER DAY
     Route: 048
     Dates: start: 20090701

REACTIONS (4)
  - DIARRHOEA [None]
  - PYREXIA [None]
  - RASH [None]
  - VOMITING [None]
